FAERS Safety Report 23775357 (Version 1)
Quarter: 2024Q2

REPORT INFORMATION
  Report Type: Spontaneous
  Country: CN (occurrence: CN)
  Receive Date: 20240423
  Receipt Date: 20240423
  Transmission Date: 20240716
  Serious: Yes (Hospitalization)
  Sender: FDA-Public Use
  Company Number: CN-Merck Healthcare KGaA-2024020292

PATIENT
  Age: 60 Year
  Sex: Male
  Weight: 70 kg

DRUGS (3)
  1. ERBITUX [Suspect]
     Active Substance: CETUXIMAB
     Indication: Oropharyngeal cancer
     Dosage: 900 MG, UNKNOWN
     Route: 041
     Dates: start: 20240325
  2. NEDAPLATIN [Suspect]
     Active Substance: NEDAPLATIN
     Indication: Oropharyngeal cancer
     Dosage: 55 MG, DAILY
     Route: 041
     Dates: start: 20240323, end: 20240324
  3. DOCETAXEL [Concomitant]
     Active Substance: DOCETAXEL\DOCETAXEL ANHYDROUS
     Indication: Oropharyngeal cancer
     Dosage: 110 MG, DAILY
     Route: 041
     Dates: start: 20240323, end: 20240323

REACTIONS (1)
  - Myelosuppression [Recovering/Resolving]

NARRATIVE: CASE EVENT DATE: 20240331
